FAERS Safety Report 15613621 (Version 1)
Quarter: 2018Q4

REPORT INFORMATION
  Report Type: Spontaneous
  Country: ZA (occurrence: ZA)
  Receive Date: 20181113
  Receipt Date: 20181113
  Transmission Date: 20190205
  Serious: Yes (Hospitalization)
  Sender: FDA-Public Use
  Company Number: ZA-ASCEND THERAPEUTICS-2058793

PATIENT
  Sex: Female

DRUGS (7)
  1. ESTROGEL [Suspect]
     Active Substance: ESTRADIOL
  2. PREMARIN [Suspect]
     Active Substance: ESTROGENS, CONJUGATED
  3. ELTROXIN NEW FORMULATION (LEVOTHYROXINE SODIUM) [Suspect]
     Active Substance: LEVOTHYROXINE
  4. ZANIDIP (LERCANIDIPINE HYDROCHLORIDE) (LERCANIDIPINE [Suspect]
     Active Substance: LERCANIDIPINE HYDROCHLORIDE
  5. SYNALEVE (CODEINE PHOSPHATE, PROMETHAZINE HYDROCHLORIDE, PARACETAMOL) [Suspect]
     Active Substance: ACETAMINOPHEN\CODEINE PHOSPHATE\PROMETHAZINE HYDROCHLORIDE
  6. TRUSTAN (ESOMEPRAZOLE MAGNESIUM) [Suspect]
     Active Substance: ESOMEPRAZOLE
  7. ADCO-SIMVASTATIN (SIMVASTATIN) [Suspect]
     Active Substance: SIMVASTATIN

REACTIONS (2)
  - Headache [Unknown]
  - Back disorder [Unknown]
